FAERS Safety Report 23494025 (Version 3)
Quarter: 2024Q2

REPORT INFORMATION
  Report Type: Spontaneous
  Country: US (occurrence: US)
  Receive Date: 20240207
  Receipt Date: 20240402
  Transmission Date: 20240715
  Serious: No
  Sender: FDA-Public Use
  Company Number: US-PFIZER INC-202400017278

PATIENT
  Age: 65 Year
  Sex: Female

DRUGS (1)
  1. GENOTROPIN [Suspect]
     Active Substance: SOMATROPIN
     Indication: Pituitary-dependent Cushing^s syndrome
     Dosage: 0.4 MG, DAILY (UNDER SKIN)
     Route: 058
     Dates: start: 202111

REACTIONS (3)
  - Product dose omission issue [Unknown]
  - Device information output issue [Unknown]
  - Device power source issue [Unknown]
